FAERS Safety Report 4586304-0 (Version None)
Quarter: 2005Q1

REPORT INFORMATION
  Report Type: 
  Country: None (occurrence: None)
  Receive Date: 20050217
  Receipt Date: 20040524
  Transmission Date: 20050727
  Serious: Yes (Other)
  Sender: FDA-Public Use
  Company Number: GB-MERCK-0405GBR00191

PATIENT
  Age: 55 Year
  Sex: Female

DRUGS (7)
  1. VIOXX [Suspect]
     Route: 048
  2. ADALIMUMAB [Suspect]
     Route: 051
  3. METHOTREXATE [Suspect]
     Route: 065
  4. ESTROGENS, CONJUGATED [Suspect]
     Route: 065
  5. FLUOXETINE [Suspect]
     Route: 065
  6. AMOXICILLIN AND CLAVULANATE POTASSIUM [Suspect]
     Route: 065
  7. ACETAMINOPHEN AND DIHYDROCODEINE BITARTRATE [Suspect]
     Route: 065

REACTIONS (1)
  - RETINAL HAEMORRHAGE [None]
